FAERS Safety Report 5755416-8 (Version None)
Quarter: 2008Q2

REPORT INFORMATION
  Report Type: 
  Country: None (occurrence: None)
  Receive Date: 20080529
  Receipt Date: 20080529
  Transmission Date: 20081010
  Serious: No
  Sender: FDA-Public Use
  Company Number: None

PATIENT
  Age: 31 Year
  Sex: Female
  Weight: 52.1637 kg

DRUGS (1)
  1. DRAMAMINE [Suspect]

REACTIONS (5)
  - ASTHENIA [None]
  - DIARRHOEA [None]
  - IMPAIRED DRIVING ABILITY [None]
  - PYREXIA [None]
  - VOMITING [None]
